FAERS Safety Report 10674879 (Version 1)
Quarter: 2014Q4

REPORT INFORMATION
  Report Type: Spontaneous
  Country: US (occurrence: None)
  Receive Date: 20141223
  Receipt Date: 20141223
  Transmission Date: 20150529
  Serious: Yes (Hospitalization)
  Sender: FDA-Public Use
  Company Number: None

PATIENT
  Age: 59 Year
  Sex: Male
  Weight: 82 kg

DRUGS (2)
  1. LEUPROLIDE ACETATE. [Suspect]
     Active Substance: LEUPROLIDE ACETATE
     Dates: end: 20141010
  2. CASODEX [Suspect]
     Active Substance: BICALUTAMIDE
     Dates: end: 20141010

REACTIONS (2)
  - Injection site pain [None]
  - Drug ineffective [None]

NARRATIVE: CASE EVENT DATE: 20141017
